FAERS Safety Report 20873517 (Version 1)
Quarter: 2022Q2

REPORT INFORMATION
  Report Type: Spontaneous
  Country: US (occurrence: None)
  Receive Date: 20220524
  Receipt Date: 20220524
  Transmission Date: 20220720
  Serious: No
  Sender: FDA-Public Use
  Company Number: None

PATIENT
  Age: 13 Year
  Sex: Female

DRUGS (1)
  1. GENOTROPIN [Suspect]
     Active Substance: SOMATROPIN
     Dosage: OTHER QUANTITY : 2.6MG;?FREQUENCY : DAILY;?
     Route: 058
     Dates: start: 20211220

REACTIONS (4)
  - Mental disorder [None]
  - Suicide attempt [None]
  - Prescription drug used without a prescription [None]
  - Therapy interrupted [None]

NARRATIVE: CASE EVENT DATE: 20220521
